FAERS Safety Report 7978730-4 (Version None)
Quarter: 2011Q4

REPORT INFORMATION
  Report Type: 
  Country: None (occurrence: None)
  Receive Date: 20111206
  Receipt Date: 20111123
  Transmission Date: 20120403
  Serious: Yes (Life-Threatening, Hospitalization)
  Sender: FDA-Public Use
  Company Number: 2009-02706

PATIENT
  Age: 83 Year
  Sex: Female
  Weight: 68.2 kg

DRUGS (9)
  1. RITUXAN (RITUXIMAB) SUSPENSION FOR INJECTION [Concomitant]
     Indication: DIFFUSE LARGE B-CELL LYMPHOMA
     Dosage: 645 MG, CYCLIC, INTRAVENOUS
     Route: 042
     Dates: start: 20090703, end: 20090703
  2. DOXIL [Suspect]
     Indication: DIFFUSE LARGE B-CELL LYMPHOMA
     Dosage: 52 MG, CYCLIC, INTRAVENOUS
     Route: 042
  3. OXYCODONE HCL [Concomitant]
  4. ACYCLOVIR [Concomitant]
  5. MULTIVITAMIN ^LAPPE^ (VITAMINS NOS) [Concomitant]
  6. VELCADE [Suspect]
     Indication: DIFFUSE LARGE B-CELL LYMPHOMA
     Dosage: 1.3 MG/M2, SYCLIC, INTRAVENOUS
     Route: 042
     Dates: start: 20090626, end: 20090703
  7. MILK OF MAGNESIA TAB [Concomitant]
  8. COLACE (DOCUSATE SODIUM) [Concomitant]
  9. COMPAZINE [Concomitant]

REACTIONS (9)
  - MYOCARDIAL INFARCTION [None]
  - TACHYCARDIA [None]
  - TROPONIN INCREASED [None]
  - HYPOTENSION [None]
  - MYOCARDITIS [None]
  - BLOOD CHLORIDE DECREASED [None]
  - HAEMOGLOBIN DECREASED [None]
  - BLOOD SODIUM DECREASED [None]
  - HAEMATOCRIT DECREASED [None]
